FAERS Safety Report 9778219 (Version 1)
Quarter: 2013Q4

REPORT INFORMATION
  Report Type: Spontaneous
  Country: DE (occurrence: DE)
  Receive Date: 20131223
  Receipt Date: 20131223
  Transmission Date: 20140711
  Serious: Yes (Death, Life-Threatening, Hospitalization, Congenital Anomaly)
  Sender: FDA-Public Use
  Company Number: GXKR2013DE003865

PATIENT
  Sex: 0

DRUGS (4)
  1. PAROXETINE [Suspect]
     Dosage: 40 [MG/D ]
     Route: 064
     Dates: start: 20090414, end: 20090630
  2. ADALAT [Concomitant]
     Route: 064
  3. ACIDUM FOLICUM [Concomitant]
     Dosage: 0.4 [MG/D ]
     Route: 064
  4. KADEFUNGIN [Concomitant]
     Route: 064

REACTIONS (10)
  - Congenital diaphragmatic hernia [Fatal]
  - Congenital tracheomalacia [Fatal]
  - Tracheo-oesophageal fistula [Fatal]
  - Vitello-intestinal duct remnant [Fatal]
  - Patent ductus arteriosus [Fatal]
  - Oesophageal atresia [Fatal]
  - Clinodactyly [Fatal]
  - Abnormal palmar/plantar creases [Fatal]
  - Anomaly of external ear congenital [Fatal]
  - Atrial septal defect [Fatal]
